FAERS Safety Report 9081407 (Version 1)
Quarter: 2013Q1

REPORT INFORMATION
  Report Type: Report from Study
  Country: DE (occurrence: US)
  Receive Date: 20130130
  Receipt Date: 20130130
  Transmission Date: 20140127
  Serious: Yes (Death, Life-Threatening, Hospitalization)
  Sender: FDA-Public Use
  Company Number: DE-COVIDIEN/TYCO HEALTHCARE/MALLINCKRODT-T201300109

PATIENT
  Age: 70 Year
  Sex: Female

DRUGS (2)
  1. GABLOFEN [Suspect]
     Indication: STIFF PERSON SYNDROME
     Dosage: 0.5 MG/ML (REFILL)
  2. GABLOFEN [Suspect]
     Dosage: 2 MG/ML; 1440 MCG/DAY FOR TWO YEARS
     Route: 037

REACTIONS (15)
  - Drug withdrawal syndrome [Fatal]
  - Shock [Fatal]
  - Drug dispensing error [Recovered/Resolved]
  - Tachypnoea [Recovered/Resolved]
  - Cyanosis [Recovered/Resolved]
  - Acidosis [Recovered/Resolved]
  - Blood creatine phosphokinase increased [Recovered/Resolved]
  - Bundle branch block left [Recovered/Resolved]
  - Electrocardiogram ST segment elevation [Recovered/Resolved]
  - Disseminated intravascular coagulation [Recovered/Resolved]
  - Leukocytosis [Recovered/Resolved]
  - Tachycardia [Recovered/Resolved]
  - Muscle spasms [Recovered/Resolved]
  - Hypotension [Recovered/Resolved]
  - Pyrexia [Recovered/Resolved]
